FAERS Safety Report 18500524 (Version 3)
Quarter: 2021Q2

REPORT INFORMATION
  Report Type: Spontaneous
  Country: IN (occurrence: IN)
  Receive Date: 20201113
  Receipt Date: 20210524
  Transmission Date: 20210717
  Serious: Yes (Life-Threatening, Hospitalization, Other)
  Sender: FDA-Public Use
  Company Number: IN-ACCORD-207777

PATIENT
  Age: 48 Year
  Sex: Male

DRUGS (2)
  1. METHOTREXATE. [Suspect]
     Active Substance: METHOTREXATE
     Indication: PSORIASIS
     Dosage: SINGLE DOSE
  2. ETORICOXIB. [Interacting]
     Active Substance: ETORICOXIB
     Indication: ARTHRALGIA
     Dosage: FOR LAST 5 YEARS

REACTIONS (7)
  - Nail disorder [Recovered/Resolved]
  - Nephropathy [Recovered/Resolved]
  - Hypophagia [Recovered/Resolved]
  - Skin erosion [Recovered/Resolved]
  - Drug ineffective [Unknown]
  - Pancytopenia [Recovered/Resolved]
  - Drug interaction [Unknown]
